FAERS Safety Report 10388835 (Version 1)
Quarter: 2014Q1

REPORT INFORMATION
  Report Type: Spontaneous
  Country: US (occurrence: None)
  Receive Date: 20140306
  Receipt Date: 20140306
  Transmission Date: 20141002
  Serious: Yes (Hospitalization)
  Sender: FDA-Public Use
  Company Number: 163-21880-13105049

PATIENT
  Age: 88 Year
  Sex: Male
  Weight: 78 kg

DRUGS (7)
  1. REVLIMID (LENALIDOMIDE)(15 MILLIGRAM, CAPSULES) [Suspect]
     Indication: PLASMA CELL MYELOMA
     Dosage: 14 IN 21 D, PO?
     Route: 048
     Dates: start: 201306
  2. ZOLPIDEM(ZOLPIDEM)(TABLETS) [Concomitant]
  3. CARBAMAZEPINE(CARBAMAZEPINE)(TABLETS) [Concomitant]
  4. ATENOLOL(ATENOLOL) (TABLETS) [Concomitant]
  5. CITALOPRAM(CITALOPRAM)(TABLETS) [Concomitant]
  6. LISINOPRIL(LISINOPRIL)(TABLETS) [Concomitant]
  7. OMEPRAZOLE (OMEPRAZOLE) (CAPSULES) [Concomitant]

REACTIONS (1)
  - Epistaxis [None]
